FAERS Safety Report 9723806 (Version 1)
Quarter: 2013Q4

REPORT INFORMATION
  Report Type: Spontaneous
  Country: US (occurrence: US)
  Receive Date: 20131202
  Receipt Date: 20131202
  Transmission Date: 20140711
  Serious: Yes (Hospitalization, Other)
  Sender: FDA-Public Use
  Company Number: US-BAYER-2013-143917

PATIENT
  Age: 41 Year
  Sex: Female
  Weight: 89.8 kg

DRUGS (4)
  1. YAZ [Suspect]
  2. YASMIN [Suspect]
  3. PRILOSEC [Concomitant]
  4. DARVOCET-N [Concomitant]

REACTIONS (4)
  - Pancreatitis [None]
  - Cholecystitis [None]
  - Mesenteric vein thrombosis [None]
  - Splenic vein thrombosis [None]
